FAERS Safety Report 25941796 (Version 1)
Quarter: 2025Q4

REPORT INFORMATION
  Report Type: Spontaneous
  Country: CA (occurrence: CA)
  Receive Date: 20251020
  Receipt Date: 20251020
  Transmission Date: 20260118
  Serious: Yes (Hospitalization)
  Sender: MYLAN
  Company Number: CA-MYLANLABS-2025M1088458

PATIENT
  Age: 34 Year
  Sex: Male
  Weight: 95 kg

DRUGS (10)
  1. DIVALPROEX SODIUM [Suspect]
     Active Substance: DIVALPROEX SODIUM
     Indication: Product used for unknown indication
     Dosage: UNK
  2. DIAZEPAM [Suspect]
     Active Substance: DIAZEPAM
     Indication: Sleep disorder
     Dosage: 25 MILLIGRAM, QD (1 EVERY 1 DAYS)
  3. ARIPIPRAZOLE [Suspect]
     Active Substance: ARIPIPRAZOLE
     Indication: Product used for unknown indication
     Dosage: UNK
  4. DAYVIGO [Suspect]
     Active Substance: LEMBOREXANT
     Indication: Sleep disorder
     Dosage: 10 MILLIGRAM
  5. LEVOMEPROMAZINE [Suspect]
     Active Substance: LEVOMEPROMAZINE
     Indication: Product used for unknown indication
     Dosage: UNK
  6. ACETAMINOPHEN [Concomitant]
     Active Substance: ACETAMINOPHEN
     Dosage: UNK
  7. ASPIRIN [Concomitant]
     Active Substance: ASPIRIN
     Dosage: UNK
  8. CHOLECALCIFEROL [Concomitant]
     Active Substance: CHOLECALCIFEROL
     Dosage: UNK
  9. ROSUVASTATIN [Concomitant]
     Active Substance: ROSUVASTATIN
     Dosage: UNK
  10. TAMSULOSIN [Concomitant]
     Active Substance: TAMSULOSIN
     Dosage: UNK

REACTIONS (3)
  - Confusional state [Recovered/Resolved]
  - Sedation [Recovered/Resolved]
  - Fall [Recovered/Resolved]
